FAERS Safety Report 13783921 (Version 1)
Quarter: 2017Q3

REPORT INFORMATION
  Report Type: Spontaneous
  Country: US (occurrence: US)
  Receive Date: 20170724
  Receipt Date: 20170724
  Transmission Date: 20171127
  Serious: Yes (Hospitalization)
  Sender: FDA-Public Use
  Company Number: PHHY2017US105025

PATIENT
  Age: 17 Year
  Sex: Male

DRUGS (2)
  1. LORAZEPAM. [Suspect]
     Active Substance: LORAZEPAM
     Indication: CATATONIA
     Dosage: 3 MG, TID
     Route: 065
  2. LORAZEPAM. [Suspect]
     Active Substance: LORAZEPAM
     Indication: NEUROLEPTIC MALIGNANT SYNDROME
     Dosage: 4 MG, QID
     Route: 065

REACTIONS (5)
  - Blood creatine phosphokinase decreased [Unknown]
  - Agitation [Unknown]
  - Psychomotor retardation [Unknown]
  - Drug effect incomplete [Unknown]
  - Aggression [Unknown]
